FAERS Safety Report 6733576-X (Version None)
Quarter: 2010Q2

REPORT INFORMATION
  Report Type: 
  Country: None (occurrence: None)
  Receive Date: 20100520
  Receipt Date: 20100511
  Transmission Date: 20101027
  Serious: Yes (Other)
  Sender: FDA-Public Use
  Company Number: CA-JNJFOC-20090805900

PATIENT
  Sex: Female
  Weight: 54 kg

DRUGS (2)
  1. REMICADE [Suspect]
     Indication: CROHN'S DISEASE
     Route: 042
  2. PURINETHOL [Concomitant]
     Route: 048

REACTIONS (1)
  - HYPOAESTHESIA [None]
